FAERS Safety Report 9145500 (Version 2)
Quarter: 2013Q1

REPORT INFORMATION
  Report Type: Spontaneous
  Country: US (occurrence: US)
  Receive Date: 20130307
  Receipt Date: 20130318
  Transmission Date: 20140127
  Serious: No
  Sender: FDA-Public Use
  Company Number: US-TEVA-389972USA

PATIENT
  Age: 77 Year
  Sex: Female

DRUGS (1)
  1. ENJUVIA [Suspect]
     Dosage: DAILY

REACTIONS (2)
  - Drug ineffective [Unknown]
  - Metrorrhagia [Not Recovered/Not Resolved]
